FAERS Safety Report 6382523-1 (Version None)
Quarter: 2009Q3

REPORT INFORMATION
  Report Type: 
  Country: None (occurrence: None)
  Receive Date: 20090930
  Receipt Date: 20090925
  Transmission Date: 20100115
  Serious: Yes (Hospitalization)
  Sender: FDA-Public Use
  Company Number: DE-SANOFI-SYNTHELABO-F04200900099

PATIENT
  Sex: Male

DRUGS (2)
  1. CAPECITABINE [Suspect]
     Indication: RECTAL CANCER
     Route: 048
     Dates: start: 20090101, end: 20090917
  2. OXALIPLATIN [Suspect]
     Indication: RECTAL CANCER
     Route: 041
     Dates: start: 20090910, end: 20090910

REACTIONS (1)
  - SEPTIC SHOCK [None]
